FAERS Safety Report 7127608-7 (Version None)
Quarter: 2010Q4

REPORT INFORMATION
  Report Type: 
  Country: None (occurrence: None)
  Receive Date: 20101130
  Receipt Date: 20101025
  Transmission Date: 20110411
  Serious: Yes (Death, Other)
  Sender: FDA-Public Use
  Company Number: GB-AMGEN-GBRCT2010001714

PATIENT

DRUGS (11)
  1. ENBREL [Suspect]
     Indication: RHEUMATOID ARTHRITIS
     Dosage: 25 MG, 2 TIMES/WK
     Dates: start: 20060427, end: 20070201
  2. PREDNISOLONE [Concomitant]
     Dosage: UNKNOWN
  3. AMITRIPTYLINE [Concomitant]
     Dosage: UNKNOWN
  4. CALCICHEW [Concomitant]
     Dosage: UNKNOWN
  5. TRAMADOL HCL [Concomitant]
     Dosage: UNKNOWN
  6. GABAPENTIN [Concomitant]
     Dosage: UNKNOWN
  7. PANTOPRAZOLE [Concomitant]
     Dosage: UNKNOWN
  8. ACETAMINOPHEN [Concomitant]
     Dosage: UNKNOWN
  9. RISEDRONATE SODIUM [Concomitant]
     Dosage: UNKNOWN
  10. AZATHIOPRINE [Concomitant]
     Dosage: UNKNOWN
  11. FERROUS SULFATE [Concomitant]
     Dosage: UNKNOWN

REACTIONS (5)
  - BACTERIAL DISEASE CARRIER [None]
  - CHRONIC OBSTRUCTIVE PULMONARY DISEASE [None]
  - GASTROINTESTINAL HAEMORRHAGE [None]
  - HEPATORENAL FAILURE [None]
  - PNEUMONIA [None]
